FAERS Safety Report 7118853-5 (Version None)
Quarter: 2010Q4

REPORT INFORMATION
  Report Type: 
  Country: None (occurrence: None)
  Receive Date: 20101123
  Receipt Date: 20100811
  Transmission Date: 20110411
  Serious: No
  Sender: FDA-Public Use
  Company Number: US-KINGPHARMUSA00001-K201001021

PATIENT
  Sex: Female
  Weight: 63.492 kg

DRUGS (2)
  1. FLECTOR [Suspect]
     Indication: BACK PAIN
     Dosage: 1 PATCH, 12 HOURS QD
     Route: 061
     Dates: start: 20100801, end: 20100808
  2. FLECTOR [Suspect]
     Indication: INTERVERTEBRAL DISC PROTRUSION
     Dosage: UNK PATCH, TWO TO FOUR DAYS AT A TIME
     Dates: start: 20080101

REACTIONS (1)
  - APPLICATION SITE PAIN [None]
